FAERS Safety Report 23296475 (Version 1)
Quarter: 2023Q4

REPORT INFORMATION
  Report Type: Other
  Country: US (occurrence: None)
  Receive Date: 20231214
  Receipt Date: 20231214
  Transmission Date: 20240110
  Serious: Yes (Hospitalization)
  Sender: FDA-Public Use
  Company Number: US-ROCHE-3099764

PATIENT
  Age: 60 Year
  Sex: Female

DRUGS (1)
  1. OCREVUS [Suspect]
     Active Substance: OCRELIZUMAB
     Indication: Multiple sclerosis
     Dosage: DATE OF TREATMENT FOR 1ST HALF INFUSION : 12/APR/2022, 27/APR/2022, 02/NOV/2022, 16/MAY/2023
     Route: 065
     Dates: start: 20220412

REACTIONS (5)
  - Infusion related reaction [Unknown]
  - Tooth extraction [Unknown]
  - Appendicitis perforated [Unknown]
  - Upper gastrointestinal haemorrhage [Unknown]
  - Deep vein thrombosis [Unknown]
